FAERS Safety Report 22741418 (Version 3)
Quarter: 2025Q3

REPORT INFORMATION
  Report Type: Spontaneous
  Country: US (occurrence: US)
  Receive Date: 20230724
  Receipt Date: 20250828
  Transmission Date: 20251021
  Serious: Yes (Life-Threatening, Hospitalization, Other)
  Sender: CHATTEM
  Company Number: US-SA-2023SA199161

PATIENT
  Age: 64 Year
  Sex: Female

DRUGS (13)
  1. HYDROCORTISONE [Suspect]
     Active Substance: HYDROCORTISONE
     Indication: Chronic fatigue syndrome
     Route: 048
  2. HYDROCORTISONE [Suspect]
     Active Substance: HYDROCORTISONE
  3. HYDROCORTISONE [Suspect]
     Active Substance: HYDROCORTISONE
  4. HYDROCORTISONE [Suspect]
     Active Substance: HYDROCORTISONE
  5. HYDROCORTISONE [Suspect]
     Active Substance: HYDROCORTISONE
  6. HYDROCORTISONE [Suspect]
     Active Substance: HYDROCORTISONE
  7. HYDROCORTISONE [Suspect]
     Active Substance: HYDROCORTISONE
  8. HYDROCORTISONE [Suspect]
     Active Substance: HYDROCORTISONE
  9. HYDROCORTISONE [Suspect]
     Active Substance: HYDROCORTISONE
  10. HYDROCORTISONE [Suspect]
     Active Substance: HYDROCORTISONE
  11. HYDROCORTISONE [Suspect]
     Active Substance: HYDROCORTISONE
  12. HYDROCORTISONE [Suspect]
     Active Substance: HYDROCORTISONE
  13. HYDROCORTISONE [Suspect]
     Active Substance: HYDROCORTISONE

REACTIONS (13)
  - Hyperadrenocorticism [Recovering/Resolving]
  - Incorrect route of product administration [Recovering/Resolving]
  - Toxicity to various agents [Recovering/Resolving]
  - Hypertension [Recovering/Resolving]
  - Hypokalaemia [Recovering/Resolving]
  - Disturbance in attention [Recovering/Resolving]
  - Lethargy [Recovering/Resolving]
  - Rhabdomyolysis [Unknown]
  - Asthenia [Unknown]
  - Myalgia [Unknown]
  - Hypertension [Recovering/Resolving]
  - Blood corticotrophin decreased [Recovering/Resolving]
  - Intentional product use issue [Unknown]
